FAERS Safety Report 7058702-7 (Version None)
Quarter: 2010Q4

REPORT INFORMATION
  Report Type: 
  Country: None (occurrence: None)
  Receive Date: 20101022
  Receipt Date: 20101020
  Transmission Date: 20110411
  Serious: Yes (Life-Threatening, Hospitalization)
  Sender: FDA-Public Use
  Company Number: GB-B.I. PHARMACEUTICALS,INC./RIDGEFIELD-2010-UK-00978UK

PATIENT
  Age: 47 Year
  Sex: Female

DRUGS (8)
  1. CATAPRES TABLETS (0015/5009R) [Suspect]
     Indication: PRODUCT USED FOR UNKNOWN INDICATION
     Dosage: 0.3 MG
     Route: 048
     Dates: start: 20100915, end: 20100915
  2. CHOLESTEROL TABLETS [Concomitant]
  3. OMEPRAZOLE [Concomitant]
     Dosage: 20 MG
     Route: 048
  4. DIAZEPAM [Concomitant]
     Dosage: 6 MG
     Route: 048
  5. EZETIMIBE [Concomitant]
     Dosage: 10 MG
     Route: 048
  6. BEZAFIBRATE [Concomitant]
     Dosage: 400 MG
     Route: 048
  7. CO-DYD [Concomitant]
     Dosage: 2 G
     Route: 048
  8. NOSTHESTERONE [Concomitant]
     Dosage: 15 MG
     Route: 048

REACTIONS (1)
  - MYOCARDIAL INFARCTION [None]
